FAERS Safety Report 10171653 (Version 1)
Quarter: 2014Q2

REPORT INFORMATION
  Report Type: Spontaneous
  Country: CN (occurrence: CN)
  Receive Date: 20140514
  Receipt Date: 20140514
  Transmission Date: 20141212
  Serious: Yes (Other)
  Sender: FDA-Public Use
  Company Number: CN-CELGENEUS-035-21660-14045771

PATIENT
  Sex: 0

DRUGS (5)
  1. ABRAXANE [Suspect]
     Indication: BREAST CANCER
     Route: 041
  2. EPIRUBICIN [Suspect]
     Indication: BREAST CANCER
     Route: 065
  3. EPIRUBICIN [Suspect]
     Route: 065
  4. CYCLOPHOSPHAMIDE [Suspect]
     Indication: BREAST CANCER
     Route: 065
  5. CYCLOPHOSPHAMIDE [Suspect]
     Route: 065

REACTIONS (10)
  - Cardiotoxicity [Unknown]
  - Neutropenia [Unknown]
  - Liver disorder [Unknown]
  - Renal impairment [Unknown]
  - Anaemia [Unknown]
  - Thrombocytopenia [Unknown]
  - Alopecia [Unknown]
  - Nausea [Unknown]
  - Vomiting [Unknown]
  - Neuropathy peripheral [Unknown]
